FAERS Safety Report 12923773 (Version 1)
Quarter: 2016Q4

REPORT INFORMATION
  Report Type: Spontaneous
  Country: US (occurrence: US)
  Receive Date: 20161108
  Receipt Date: 20161108
  Transmission Date: 20170207
  Serious: No
  Sender: FDA-Public Use
  Company Number: None

PATIENT
  Age: 56 Year
  Sex: Female

DRUGS (1)
  1. SUSTIVA [Suspect]
     Active Substance: EFAVIRENZ
     Indication: HIV INFECTION

REACTIONS (7)
  - Limb injury [None]
  - Accident at work [None]
  - Hallucination, auditory [None]
  - Sciatica [None]
  - Anxiety [None]
  - Platelet count decreased [None]
  - Arthralgia [None]

NARRATIVE: CASE EVENT DATE: 20161108
